FAERS Safety Report 4287554-3 (Version None)
Quarter: 2004Q1

REPORT INFORMATION
  Report Type: 
  Country: None (occurrence: None)
  Receive Date: 20040209
  Receipt Date: 20030723
  Transmission Date: 20041129
  Serious: No
  Sender: FDA-Public Use
  Company Number: US-GLAXOSMITHKLINE-A0418033A

PATIENT
  Age: 29 Year
  Sex: Female

DRUGS (1)
  1. PAXIL CR [Suspect]
     Indication: PANIC ATTACK
     Dosage: 12.5MG PER DAY
     Route: 048
     Dates: start: 20030722

REACTIONS (4)
  - CARDIAC DISORDER [None]
  - CHEST PAIN [None]
  - PALPITATIONS [None]
  - TACHYCARDIA [None]
